FAERS Safety Report 19126546 (Version 1)
Quarter: 2021Q2

REPORT INFORMATION
  Report Type: Other
  Country: US (occurrence: US)
  Receive Date: 20210412
  Receipt Date: 20210412
  Transmission Date: 20210717
  Serious: Yes (Death)
  Sender: FDA-Public Use
  Company Number: US-SAGENT PHARMACEUTICALS-2021SAG000666

PATIENT

DRUGS (3)
  1. PHENYLEPHRINE HYDROCHLORIDE. [Suspect]
     Active Substance: PHENYLEPHRINE HYDROCHLORIDE
     Indication: PRODUCT USED FOR UNKNOWN INDICATION
     Dosage: UNK
     Route: 065
     Dates: start: 20210303, end: 20210303
  2. PHENYLEPHRINE HYDROCHLORIDE. [Suspect]
     Active Substance: PHENYLEPHRINE HYDROCHLORIDE
     Dosage: UNK
     Route: 065
     Dates: start: 20210310, end: 20210310
  3. PHENYLEPHRINE HYDROCHLORIDE. [Suspect]
     Active Substance: PHENYLEPHRINE HYDROCHLORIDE
     Dosage: UNK
     Route: 065
     Dates: start: 20210309, end: 20210309

REACTIONS (2)
  - Death [Fatal]
  - Product sterility lacking [Unknown]

NARRATIVE: CASE EVENT DATE: 20210310
